FAERS Safety Report 5901053-1 (Version None)
Quarter: 2008Q3

REPORT INFORMATION
  Report Type: 
  Country: None (occurrence: None)
  Receive Date: 20080929
  Receipt Date: 20070709
  Transmission Date: 20090109
  Serious: Yes (Other)
  Sender: FDA-Public Use
  Company Number: US-BAYER-200711699BWH

PATIENT
  Age: 50 Year
  Sex: Female

DRUGS (11)
  1. AVELOX [Suspect]
     Indication: PNEUMONIA
     Route: 042
     Dates: start: 20070518
  2. AVANDIA [Concomitant]
  3. GLUCOPHAGE [Concomitant]
  4. LIPITOR [Concomitant]
  5. SEROQUEL [Concomitant]
  6. KLONOPIN [Concomitant]
  7. COGENTIN [Concomitant]
  8. LITHIUM CARBONATE [Concomitant]
  9. ASPIRIN [Concomitant]
  10. HALDOL [Concomitant]
  11. LAMICTAL [Concomitant]

REACTIONS (1)
  - HYPOTENSION [None]
